FAERS Safety Report 6839379-X (Version None)
Quarter: 2010Q2

REPORT INFORMATION
  Report Type: 
  Country: None (occurrence: None)
  Receive Date: 20100629
  Receipt Date: 20100429
  Transmission Date: 20101027
  Serious: No
  Sender: FDA-Public Use
  Company Number: US-WYE-H14930210

PATIENT
  Age: 31 Year
  Sex: Female
  Weight: 63.56 kg

DRUGS (1)
  1. PRISTIQ [Suspect]
     Indication: ANXIETY
     Dosage: 50 MG (FREQUENCY UNKNOWN), THEN TRIED TO DECREASE TO EVERY OTHER DAY, THEN RESUMED TAKING DAILY, ORA
     Route: 048
     Dates: start: 20090101

REACTIONS (7)
  - APATHY [None]
  - DEPRESSION [None]
  - DIZZINESS [None]
  - DRUG WITHDRAWAL SYNDROME [None]
  - FATIGUE [None]
  - FEELING ABNORMAL [None]
  - LOSS OF LIBIDO [None]
